FAERS Safety Report 6250276-3 (Version None)
Quarter: 2009Q2

REPORT INFORMATION
  Report Type: 
  Country: None (occurrence: None)
  Receive Date: 20090625
  Receipt Date: 20090625
  Transmission Date: 20091009
  Serious: Yes (Death)
  Sender: FDA-Public Use
  Company Number: None

PATIENT
  Age: 4 Year
  Sex: Male
  Weight: 18 kg

DRUGS (12)
  1. NIFURTIMOX 120MG TABS [Suspect]
     Indication: NEUROBLASTOMA
     Dosage: 30MG/KG/DAY PO DIV TID
     Route: 048
     Dates: start: 20090424, end: 20090602
  2. LASIX [Concomitant]
  3. ATIVAN [Concomitant]
  4. ZOFRAN [Concomitant]
  5. BENADRYL [Concomitant]
  6. DECADRON [Concomitant]
  7. MORPHINE [Concomitant]
  8. PROTONIX [Concomitant]
  9. SENNA [Concomitant]
  10. METHOTREXATE [Concomitant]
  11. MIRALAX [Concomitant]
  12. OXYCODONE [Concomitant]

REACTIONS (6)
  - ABDOMINAL DISCOMFORT [None]
  - BONE MARROW DISORDER [None]
  - CONSTIPATION [None]
  - MALAISE [None]
  - PAIN IN EXTREMITY [None]
  - VANILLYL MANDELIC ACID URINE INCREASED [None]
